FAERS Safety Report 22101318 (Version 1)
Quarter: 2023Q1

REPORT INFORMATION
  Report Type: Spontaneous
  Country: CO (occurrence: CO)
  Receive Date: 20230316
  Receipt Date: 20230316
  Transmission Date: 20230418
  Serious: Yes (Life-Threatening, Hospitalization, Other)
  Sender: FDA-Public Use
  Company Number: None

PATIENT
  Age: 32 Month
  Sex: Female

DRUGS (9)
  1. AMOXICILLIN\CLAVULANATE POTASSIUM [Suspect]
     Active Substance: AMOXICILLIN\CLAVULANATE POTASSIUM
     Indication: Product used for unknown indication
     Dosage: UNK
     Route: 065
  2. IBUPROFEN [Suspect]
     Active Substance: IBUPROFEN
     Indication: Analgesic intervention supportive therapy
     Dosage: UNK
     Route: 065
  3. IBUPROFEN [Suspect]
     Active Substance: IBUPROFEN
     Indication: Pyrexia
  4. IBUPROFEN [Suspect]
     Active Substance: IBUPROFEN
     Indication: Respiratory symptom
  5. IBUPROFEN [Suspect]
     Active Substance: IBUPROFEN
     Indication: Malaise
  6. ACETAMINOPHEN [Suspect]
     Active Substance: ACETAMINOPHEN
     Indication: Analgesic intervention supportive therapy
     Dosage: UNK
     Route: 065
  7. ACETAMINOPHEN [Suspect]
     Active Substance: ACETAMINOPHEN
     Indication: Pyrexia
  8. ACETAMINOPHEN [Suspect]
     Active Substance: ACETAMINOPHEN
     Indication: Respiratory symptom
  9. ACETAMINOPHEN [Suspect]
     Active Substance: ACETAMINOPHEN
     Indication: Malaise

REACTIONS (8)
  - Toxic skin eruption [Recovering/Resolving]
  - Stevens-Johnson syndrome [Recovering/Resolving]
  - Hepatic enzyme increased [Recovering/Resolving]
  - Pancreatic enzymes increased [Recovering/Resolving]
  - Interstitial lung disease [Recovering/Resolving]
  - Type IV hypersensitivity reaction [Recovering/Resolving]
  - Vasculitis [Recovering/Resolving]
  - Urticaria [Recovering/Resolving]
